FAERS Safety Report 5749545-2 (Version None)
Quarter: 2008Q2

REPORT INFORMATION
  Report Type: 
  Country: None (occurrence: None)
  Receive Date: 20080527
  Receipt Date: 20080515
  Transmission Date: 20081010
  Serious: Yes (Hospitalization)
  Sender: FDA-Public Use
  Company Number: US-WYE-H04120208

PATIENT
  Sex: Female

DRUGS (2)
  1. PROTONIX [Suspect]
     Indication: GASTROOESOPHAGEAL REFLUX DISEASE
     Dosage: 40 MG UNKNOWN FREQUENCY
     Route: 048
     Dates: start: 20070101
  2. EFFEXOR XR [Concomitant]
     Dosage: UNKNOWN

REACTIONS (1)
  - CLOSTRIDIAL INFECTION [None]
